FAERS Safety Report 10263415 (Version 1)
Quarter: 2014Q2

REPORT INFORMATION
  Report Type: Spontaneous
  Country: OM (occurrence: OM)
  Receive Date: 20140626
  Receipt Date: 20140626
  Transmission Date: 20141212
  Serious: Yes (Other)
  Sender: FDA-Public Use
  Company Number: PHHY2014OM074705

PATIENT
  Age: 27 Year
  Sex: Female

DRUGS (9)
  1. HYDRALAZINE [Suspect]
     Dosage: 5 MG, UNK
     Route: 042
  2. DIAZEPAM [Suspect]
     Indication: GENERALISED TONIC-CLONIC SEIZURE
     Dosage: UNK
  3. DIAZEPAM [Suspect]
     Dosage: 5 MG, UNK
     Route: 042
  4. PHENYTOIN [Suspect]
     Route: 041
  5. MAGNESIUM [Suspect]
     Route: 041
  6. LABETALOL [Suspect]
  7. NIFEDIPINE [Suspect]
  8. MISOPROSTOL [Suspect]
     Dosage: 400 MG, UNK
     Route: 067
  9. ANTIHYPERTENSIVE DRUGS [Concomitant]

REACTIONS (16)
  - HELLP syndrome [Unknown]
  - Aspartate aminotransferase increased [Unknown]
  - Alanine aminotransferase increased [Unknown]
  - Blood lactate dehydrogenase increased [Unknown]
  - Leukocytosis [Unknown]
  - Polychromasia [Unknown]
  - Microangiopathy [Unknown]
  - Haemolysis [Unknown]
  - Platelet count decreased [Unknown]
  - Posterior reversible encephalopathy syndrome [Unknown]
  - Depressed level of consciousness [Unknown]
  - Neutrophilia [Unknown]
  - Stillbirth [Unknown]
  - Eclampsia [Unknown]
  - Blood pressure increased [Recovered/Resolved]
  - Maternal exposure during pregnancy [Unknown]
